FAERS Safety Report 8374787-X (Version None)
Quarter: 2012Q2

REPORT INFORMATION
  Report Type: 
  Country: None (occurrence: None)
  Receive Date: 20120521
  Receipt Date: 20120508
  Transmission Date: 20120825
  Serious: No
  Sender: FDA-Public Use
  Company Number: US-ASTRAZENECA-2011SE75020

PATIENT
  Age: 77 Year
  Sex: Female

DRUGS (2)
  1. SYMBICORT [Suspect]
     Dosage: 2 PUFFS TWO TIMES A DAY
     Route: 055
  2. SYMBICORT [Suspect]
     Dosage: 1 PUFF PER DAY
     Route: 055

REACTIONS (4)
  - MIDDLE EAR EFFUSION [None]
  - FEELING JITTERY [None]
  - NASAL CONGESTION [None]
  - COUGH [None]
